FAERS Safety Report 5961289-0 (Version None)
Quarter: 2008Q4

REPORT INFORMATION
  Report Type: 
  Country: None (occurrence: None)
  Receive Date: 20081121
  Receipt Date: 20081112
  Transmission Date: 20090506
  Serious: Yes (Life-Threatening, Hospitalization)
  Sender: FDA-Public Use
  Company Number: JP-AMGEN-US314191

PATIENT
  Sex: Female
  Weight: 46 kg

DRUGS (14)
  1. ENBREL [Suspect]
     Indication: RHEUMATOID ARTHRITIS
     Route: 058
     Dates: start: 20080911, end: 20080925
  2. PREDNISOLONE [Concomitant]
     Indication: RHEUMATOID ARTHRITIS
     Route: 048
     Dates: start: 19800101
  3. PREDNISOLONE [Concomitant]
     Route: 048
     Dates: start: 19800101
  4. ANPLAG [Concomitant]
     Indication: RHEUMATOID ARTHRITIS
     Route: 048
  5. LIPITOR [Concomitant]
     Indication: HYPERCHOLESTEROLAEMIA
     Route: 048
  6. ISCOTIN [Concomitant]
     Indication: PROPHYLAXIS
     Route: 048
  7. LOXONIN [Concomitant]
     Indication: RHEUMATOID ARTHRITIS
     Route: 048
  8. GASMOTIN [Concomitant]
     Route: 048
  9. LANSOPRAZOLE [Concomitant]
     Indication: REFLUX OESOPHAGITIS
     Route: 048
  10. DEPAS [Concomitant]
     Indication: INSOMNIA
     Route: 048
  11. BREDININ [Concomitant]
     Indication: RHEUMATOID ARTHRITIS
     Route: 048
     Dates: start: 20070425, end: 20070822
  12. BREDININ [Concomitant]
     Route: 048
     Dates: start: 20070823
  13. BONALON [Concomitant]
     Indication: OSTEOPOROSIS
     Route: 048
     Dates: start: 20080301
  14. HERBAL SUPPLEMENT [Concomitant]
     Dates: start: 20030701

REACTIONS (4)
  - ACUTE RESPIRATORY DISTRESS SYNDROME [None]
  - DISSEMINATED INTRAVASCULAR COAGULATION [None]
  - ILEUS [None]
  - INTESTINAL PERFORATION [None]
